FAERS Safety Report 10886046 (Version 3)
Quarter: 2015Q2

REPORT INFORMATION
  Report Type: Spontaneous
  Country: US (occurrence: None)
  Receive Date: 20150302
  Receipt Date: 20150514
  Transmission Date: 20150821
  Serious: Yes (Hospitalization)
  Sender: FDA-Public Use
  Company Number: 2015SCAL000066

PATIENT
  Age: 60 Year
  Sex: Female

DRUGS (5)
  1. METOPROLOL TARTRATE (METOPROLOL TARTRATE) [Concomitant]
  2. BUPRENORPHINE W/NALOXONE (BUPRENORPHINE, NALOXONE) [Concomitant]
  3. AMITRIPTYLINE [Suspect]
     Active Substance: AMITRIPTYLINE
     Indication: DEPRESSION
     Dosage: AT BEDTIME
  4. LISINOPRIL (LISINOPRIL) [Concomitant]
     Active Substance: LISINOPRIL
  5. CLONIDINE HYDROCHLORIDE. [Suspect]
     Active Substance: CLONIDINE HYDROCHLORIDE
     Indication: HYPERTENSION

REACTIONS (17)
  - Acute kidney injury [None]
  - Hypertensive crisis [None]
  - Mental status changes [None]
  - Cerebellar atrophy [None]
  - Headache [None]
  - Drug screen positive [None]
  - Hypotension [None]
  - Fall [None]
  - Nausea [None]
  - Drug dependence [None]
  - Lacunar infarction [None]
  - Vomiting [None]
  - Cerebral atrophy [None]
  - Drug abuse [None]
  - Hallucination [None]
  - Encephalomalacia [None]
  - Refusal of treatment by patient [None]

NARRATIVE: CASE EVENT DATE: 201105
